FAERS Safety Report 15113216 (Version 1)
Quarter: 2018Q3

REPORT INFORMATION
  Report Type: Spontaneous
  Country: US (occurrence: US)
  Receive Date: 20180706
  Receipt Date: 20180706
  Transmission Date: 20181010
  Serious: No
  Sender: FDA-Public Use
  Company Number: US-GLENMARK PHARMACEUTICALS-2018GMK035246

PATIENT

DRUGS (2)
  1. EZETIMIBE. [Suspect]
     Active Substance: EZETIMIBE
     Indication: BLOOD CHOLESTEROL INCREASED
     Dosage: 10 MG, OD  (1 TABLET ONCE A DAY)
     Route: 048
     Dates: start: 20171115, end: 20171215
  2. EZETIMIBE. [Suspect]
     Active Substance: EZETIMIBE
     Indication: RENAL FAILURE

REACTIONS (7)
  - Muscle spasms [Unknown]
  - Hypoaesthesia [Unknown]
  - Product use in unapproved indication [Unknown]
  - Circumstance or information capable of leading to medication error [Unknown]
  - Pain in extremity [Unknown]
  - Back pain [Unknown]
  - Crying [Unknown]
